FAERS Safety Report 9911492 (Version 2)
Quarter: 2014Q1

REPORT INFORMATION
  Report Type: Spontaneous
  Country: CO (occurrence: CO)
  Receive Date: 20140219
  Receipt Date: 20140219
  Transmission Date: 20141002
  Serious: Yes (Other)
  Sender: FDA-Public Use
  Company Number: ALCN2014CO001203

PATIENT
  Sex: Female

DRUGS (1)
  1. MYDRIACYL [Suspect]
     Indication: PUPIL DILATION PROCEDURE
     Dosage: 1 GTT, ONCE/SINGLE
     Route: 047
     Dates: start: 20140203, end: 20140203

REACTIONS (2)
  - Vision blurred [Not Recovered/Not Resolved]
  - Visual acuity reduced [Not Recovered/Not Resolved]
